FAERS Safety Report 18145421 (Version 1)
Quarter: 2020Q3

REPORT INFORMATION
  Report Type: Spontaneous
  Country: US (occurrence: US)
  Receive Date: 20200813
  Receipt Date: 20200813
  Transmission Date: 20201103
  Serious: No
  Sender: FDA-Public Use
  Company Number: US-MYLANLABS-2020M1070250

PATIENT
  Sex: Male
  Weight: 100 kg

DRUGS (1)
  1. WIXELA INHUB [Suspect]
     Active Substance: FLUTICASONE PROPIONATE\SALMETEROL XINAFOATE
     Indication: ASTHMA
     Dosage: 250/50 MICROGRAM, QD (ONCE A DAY)
     Route: 055
     Dates: start: 20200524

REACTIONS (3)
  - Intentional product misuse [Not Recovered/Not Resolved]
  - Device failure [Not Recovered/Not Resolved]
  - Product quality issue [Not Recovered/Not Resolved]
